FAERS Safety Report 7363848-X (Version None)
Quarter: 2011Q1

REPORT INFORMATION
  Report Type: 
  Country: None (occurrence: None)
  Receive Date: 20110321
  Receipt Date: 20110311
  Transmission Date: 20110831
  Serious: Yes (Other)
  Sender: FDA-Public Use
  Company Number: US-ASTRAZENECA-2010SE37674

PATIENT
  Age: 51 Year
  Sex: Female

DRUGS (6)
  1. NEXIUM [Suspect]
     Route: 048
     Dates: start: 19970101
  2. AMITRIPTYLINE [Concomitant]
  3. GABAPENTIN [Concomitant]
  4. REVLIMID [Concomitant]
  5. NEUROPATH B [Concomitant]
  6. ASPIRIN [Concomitant]

REACTIONS (2)
  - STEM CELL TRANSPLANT [None]
  - BONE NEOPLASM MALIGNANT [None]
